FAERS Safety Report 15237338 (Version 1)
Quarter: 2018Q3

REPORT INFORMATION
  Report Type: Spontaneous
  Country: US (occurrence: US)
  Receive Date: 20180803
  Receipt Date: 20180803
  Transmission Date: 20181010
  Serious: No
  Sender: FDA-Public Use
  Company Number: US-MYLANLABS-2018M1054370

PATIENT
  Sex: Male

DRUGS (1)
  1. METOLAZONE TABLETS, USP [Suspect]
     Active Substance: METOLAZONE
     Indication: PRODUCT USED FOR UNKNOWN INDICATION
     Dosage: UNK
     Route: 048

REACTIONS (3)
  - Malaise [Unknown]
  - Nausea [Unknown]
  - Dizziness [Unknown]
